FAERS Safety Report 8198818-5 (Version None)
Quarter: 2012Q1

REPORT INFORMATION
  Report Type: 
  Country: None (occurrence: None)
  Receive Date: 20120309
  Receipt Date: 20120216
  Transmission Date: 20120608
  Serious: No
  Sender: FDA-Public Use
  Company Number: US-AMGEN-USASP2012010446

PATIENT
  Age: 78 Year
  Sex: Female

DRUGS (5)
  1. FISH OIL [Concomitant]
     Dosage: UNK
  2. MULTI-VITAMIN [Concomitant]
     Dosage: UNK
  3. PROLIA [Suspect]
     Indication: OSTEOPOROSIS POSTMENOPAUSAL
     Dosage: 60 MG, Q6MO
     Dates: start: 20101220
  4. ASPIRIN [Concomitant]
     Dosage: UNK
  5. CALCIUM + VIT D [Concomitant]
     Dosage: UNK

REACTIONS (2)
  - ADVERSE DRUG REACTION [None]
  - RASH MACULO-PAPULAR [None]
